FAERS Safety Report 8572999 (Version 3)
Quarter: 2013Q1

REPORT INFORMATION
  Report Type: Spontaneous
  Country: US (occurrence: US)
  Receive Date: 20120522
  Receipt Date: 20130315
  Transmission Date: 20140127
  Serious: Yes (Hospitalization)
  Sender: FDA-Public Use
  Company Number: US-BAYER-2012-049704

PATIENT
  Age: 49 Year
  Sex: Female
  Weight: 68 kg

DRUGS (7)
  1. YAZ [Suspect]
     Dosage: UNK
     Dates: start: 200703, end: 201011
  2. OCELLA [Suspect]
     Dosage: UNK
     Dates: start: 200703, end: 201011
  3. IBUPROFEN [Concomitant]
     Dosage: UNK
     Dates: start: 20101030
  4. HYDROCODONE W/ACETAMINOPHEN [Concomitant]
     Dosage: UNK
     Dates: start: 20101030
  5. 5-HYDROXYTRYPTOPHAN [Concomitant]
     Dosage: UNK
     Dates: start: 20101030
  6. LEVOTHYROXINE [Concomitant]
     Dosage: UNK
     Dates: start: 20101123
  7. FLEXERIL [Concomitant]
     Dosage: UNK
     Dates: start: 20101123

REACTIONS (7)
  - Deep vein thrombosis [None]
  - Pain [None]
  - Pain [None]
  - Injury [None]
  - General physical health deterioration [None]
  - Anxiety [None]
  - Emotional distress [None]
